FAERS Safety Report 17729699 (Version 2)
Quarter: 2020Q2

REPORT INFORMATION
  Report Type: Report from Study
  Country: US (occurrence: US)
  Receive Date: 20200430
  Receipt Date: 20200514
  Transmission Date: 20200714
  Serious: Yes (Death, Hospitalization)
  Sender: FDA-Public Use
  Company Number: US-BAYER-2020-073541

PATIENT
  Age: 79 Year
  Sex: Male

DRUGS (1)
  1. ADEMPAS [Suspect]
     Active Substance: RIOCIGUAT
     Indication: PULMONARY ARTERIAL HYPERTENSION
     Dosage: UNK

REACTIONS (5)
  - Cor pulmonale [Fatal]
  - Chronic myelomonocytic leukaemia [Fatal]
  - Dyspnoea exertional [None]
  - Dyspnoea [None]
  - Dyspnoea paroxysmal nocturnal [None]
